FAERS Safety Report 14282269 (Version 2)
Quarter: 2018Q4

REPORT INFORMATION
  Report Type: Spontaneous
  Country: US (occurrence: US)
  Receive Date: 20171213
  Receipt Date: 20181203
  Transmission Date: 20190204
  Serious: No
  Sender: FDA-Public Use
  Company Number: US-ENDO PHARMACEUTICALS INC-2017-005530

PATIENT
  Sex: Female

DRUGS (1)
  1. FROVA [Suspect]
     Active Substance: FROVATRIPTAN SUCCINATE
     Indication: MIGRAINE
     Dosage: TWO TABLETS WITHIN SPECIFIED TWO HOURS; ADDITIONAL FROVA NOT PERMITTED UNTIL AFTER 24 HOURS
     Route: 065

REACTIONS (2)
  - Product blister packaging issue [Unknown]
  - Drug ineffective [Unknown]
